FAERS Safety Report 6218711-4 (Version None)
Quarter: 2009Q2

REPORT INFORMATION
  Report Type: 
  Country: None (occurrence: None)
  Receive Date: 20090608
  Receipt Date: 20090422
  Transmission Date: 20091009
  Serious: Yes (Death, Life-Threatening)
  Sender: FDA-Public Use
  Company Number: DE-TEVA-196967ISR

PATIENT
  Sex: Male

DRUGS (12)
  1. FLUDARABINE PHOSPHATE [Suspect]
     Indication: MYELODYSPLASTIC SYNDROME
     Dates: start: 20090321, end: 20090324
  2. FLUDARABINE PHOSPHATE [Suspect]
     Dates: start: 20090325, end: 20090325
  3. FLUDARABINE PHOSPHATE [Concomitant]
  4. METHOTREXATE [Suspect]
     Indication: MYELODYSPLASTIC SYNDROME
     Dates: start: 20090328
  5. METHOTREXATE [Suspect]
     Dates: start: 20090330
  6. METHOTREXATE [Suspect]
     Dates: start: 20090402
  7. CYCLOSPORINE [Suspect]
     Indication: MYELODYSPLASTIC SYNDROME
     Route: 042
     Dates: start: 20090326
  8. TREOSULFAN [Suspect]
     Indication: MYELODYSPLASTIC SYNDROME
     Dates: start: 20090321, end: 20090323
  9. ANTILYMPHOCYTE IMMUNOGLOBULIN [Suspect]
     Indication: MYELODYSPLASTIC SYNDROME
     Dates: start: 20090323, end: 20090325
  10. CIPROFLOXACIN HYDROCHLORIDE [Concomitant]
     Route: 048
     Dates: start: 20090411, end: 20090419
  11. TACROLIMUS [Concomitant]
     Route: 048
     Dates: start: 20090410
  12. CALCIUM FOLINATE [Concomitant]
     Dates: start: 20090402

REACTIONS (5)
  - HEPATIC ENCEPHALOPATHY [None]
  - HEPATORENAL SYNDROME [None]
  - PANCREATITIS NECROTISING [None]
  - PNEUMONIA [None]
  - SEPTIC SHOCK [None]
